FAERS Safety Report 18490632 (Version 2)
Quarter: 2020Q4

REPORT INFORMATION
  Report Type: Spontaneous
  Country: US (occurrence: US)
  Receive Date: 20201111
  Receipt Date: 20201124
  Transmission Date: 20210114
  Serious: No
  Sender: FDA-Public Use
  Company Number: US-STERRX, LLC-2095805

PATIENT
  Age: 66 Year
  Sex: Male
  Weight: 71.8 kg

DRUGS (1)
  1. NOREPINEPHRINE-4MG IN 0.9% SODIUM CHLORIDE 250ML INJECTION BFS BAG [Suspect]
     Active Substance: NOREPINEPHRINE BITARTRATE
     Route: 041
     Dates: start: 20201028, end: 20201028

REACTIONS (1)
  - Hypotension [Recovered/Resolved]

NARRATIVE: CASE EVENT DATE: 20201028
